FAERS Safety Report 5020008-5 (Version None)
Quarter: 2006Q2

REPORT INFORMATION
  Report Type: 
  Country: None (occurrence: None)
  Receive Date: 20060607
  Receipt Date: 20060531
  Transmission Date: 20061013
  Serious: Yes (Other)
  Sender: FDA-Public Use
  Company Number: JP-MERCK-0606USA00614

PATIENT

DRUGS (1)
  1. PEPCID [Suspect]
     Route: 042
     Dates: end: 20060529

REACTIONS (1)
  - RHABDOMYOLYSIS [None]
